FAERS Safety Report 12382527 (Version 1)
Quarter: 2016Q2

REPORT INFORMATION
  Report Type: Spontaneous
  Country: JP (occurrence: JP)
  Receive Date: 20160518
  Receipt Date: 20160518
  Transmission Date: 20160815
  Serious: Yes (Hospitalization)
  Sender: FDA-Public Use
  Company Number: JP-PFIZER INC-2016167893

PATIENT
  Age: 64 Year
  Sex: Female
  Weight: 61 kg

DRUGS (3)
  1. CARBOPLATIN. [Suspect]
     Active Substance: CARBOPLATIN
     Indication: LARGE CELL LUNG CANCER
     Dosage: 5 COURSES
  2. PACLITAXEL. [Suspect]
     Active Substance: PACLITAXEL
     Indication: LARGE CELL LUNG CANCER
     Dosage: 5 COURSES
  3. GEMCITABINE HYDROCHLORIDE. [Suspect]
     Active Substance: GEMCITABINE HYDROCHLORIDE
     Indication: LARGE CELL LUNG CANCER
     Dosage: 4 COURSES
     Dates: start: 200702, end: 200704

REACTIONS (1)
  - Pulmonary embolism [Recovered/Resolved]
